FAERS Safety Report 10242146 (Version 1)
Quarter: 2014Q1

REPORT INFORMATION
  Report Type: Spontaneous
  Country: US (occurrence: None)
  Receive Date: 20140306
  Receipt Date: 20140306
  Transmission Date: 20141002
  Serious: Yes (Other)
  Sender: FDA-Public Use
  Company Number: 163-21880-13051941

PATIENT
  Age: 68 Year
  Sex: Male

DRUGS (17)
  1. REVLIMID (LENALIDOMIDE) (CAPSULES) [Suspect]
     Indication: PLASMA CELL MYELOMA
     Dosage: 10 MG, 21 IN 21 D, PO
     Route: 048
     Dates: start: 20120619
  2. HYDROCODONE/ACETAMINOPHEN (REMEDEINE) [Concomitant]
  3. GENERLAC (LACTULOSE) [Concomitant]
  4. CHLORHEXIDINE [Concomitant]
  5. POTASSIUM CHLORIDE [Concomitant]
  6. ENOXAPARIN [Concomitant]
  7. CYCLOPHOSPHAMIDE [Concomitant]
  8. DEXAMETHASONE [Concomitant]
  9. FLUDROCORTISONE [Concomitant]
  10. GABAPENTIN [Concomitant]
  11. DOCULATE [Concomitant]
  12. OMEPRAZOLE [Concomitant]
  13. ASPIRIN (ACETYLSALICYLIC ACID) [Concomitant]
  14. DOXYCYCLINE HYCLATE [Concomitant]
  15. FLECTOR (DICLOFENAC SODIUM) [Concomitant]
  16. LACTULOSE [Concomitant]
  17. FLUCONAZOLE [Concomitant]

REACTIONS (1)
  - Deep vein thrombosis [None]
